FAERS Safety Report 5575819-4 (Version None)
Quarter: 2007Q4

REPORT INFORMATION
  Report Type: 
  Country: None (occurrence: None)
  Receive Date: 20071130
  Receipt Date: 20070726
  Transmission Date: 20080405
  Serious: No
  Sender: FDA-Public Use
  Company Number: US200708000382

PATIENT
  Age: 43 Year
  Sex: Female
  Weight: 108.8 kg

DRUGS (1)
  1. BYETTA [Suspect]
     Indication: TYPE 2 DIABETES MELLITUS
     Dosage: 5 UG, 2/D, SUBCUTANEOUS ; 10 UG, 2/D, SUBCUTANEOUS
     Route: 058

REACTIONS (10)
  - ALCOHOL POISONING [None]
  - ANKLE FRACTURE [None]
  - ERUCTATION [None]
  - FALL [None]
  - FATIGUE [None]
  - HUNGER [None]
  - JOINT DISLOCATION [None]
  - NAUSEA [None]
  - VOMITING [None]
  - WEIGHT DECREASED [None]
